FAERS Safety Report 13365322 (Version 4)
Quarter: 2017Q2

REPORT INFORMATION
  Report Type: Report from Study
  Country: DE (occurrence: DE)
  Receive Date: 20170323
  Receipt Date: 20170428
  Transmission Date: 20170830
  Serious: Yes (Hospitalization)
  Sender: FDA-Public Use
  Company Number: DE-ROCHE-1908721

PATIENT
  Age: 62 Year
  Sex: Male
  Weight: 110 kg

DRUGS (18)
  1. DEXAMETHASONE. [Concomitant]
     Active Substance: DEXAMETHASONE
     Indication: CHEMOTHERAPY
     Route: 065
     Dates: start: 20160106, end: 20160412
  2. LORAZEPAM. [Concomitant]
     Active Substance: LORAZEPAM
     Indication: ANXIETY
     Route: 065
     Dates: start: 20160316
  3. SPIRIVA [Concomitant]
     Active Substance: TIOTROPIUM BROMIDE MONOHYDRATE
     Route: 065
     Dates: start: 201504
  4. TAVOR (LORAZEPAM) [Concomitant]
     Active Substance: LORAZEPAM
     Indication: ANXIETY
     Route: 065
     Dates: start: 20160412, end: 20160412
  5. ATEZOLIZUMAB [Suspect]
     Active Substance: ATEZOLIZUMAB
     Indication: COLORECTAL CANCER METASTATIC
     Dosage: THE DATE OF THE MOST RECENT DOSE OF ATEZOLIZUAMB 800 MG PRIOR TO EVENT BECAME SERIOUS WAS ADMINISTER
     Route: 042
     Dates: start: 20160504
  6. BEVACIZUMAB [Suspect]
     Active Substance: BEVACIZUMAB
     Indication: COLORECTAL CANCER METASTATIC
     Dosage: THE DATE OF THE MOST RECENT DOSE OF BEVACIZUMAB 480 MG PRIOR TO EVENT BECAME SERIOUS WAS ADMINISTERE
     Route: 042
     Dates: start: 20160105
  7. 5-FLUOROURACIL [Suspect]
     Active Substance: FLUOROURACIL
     Indication: COLORECTAL CANCER METASTATIC
     Dosage: THE DATE OF THE MOST RECENT DOSE OF FLUOROURACIL PRIOR TO EVENT BECAME SERIOUS WAS ADMINISTERED ON 0
     Route: 042
     Dates: start: 20160504
  8. XARELTO [Concomitant]
     Active Substance: RIVAROXABAN
     Indication: ANXIETY
     Route: 065
     Dates: start: 201504, end: 20160101
  9. LEUCOVORIN. [Suspect]
     Active Substance: LEUCOVORIN
     Indication: COLORECTAL CANCER METASTATIC
     Dosage: THE DATE OF THE MOST RECENT DOSE OF LEUCOVORIN (LV) PRIOR TO EVENT BECAME SERIOUS WAS ADMINISTERED O
     Route: 042
     Dates: start: 20160504
  10. INNOHEP [Concomitant]
     Active Substance: TINZAPARIN SODIUM
     Dosage: 20000 UNITIS
     Route: 065
     Dates: start: 20170105
  11. MCP [Concomitant]
     Active Substance: METOCLOPRAMIDE HYDROCHLORIDE
     Indication: CHEMOTHERAPY
     Route: 065
     Dates: start: 20160105
  12. PIPAMPERON [Concomitant]
     Active Substance: PIPAMPERONE HYDROCHLORIDE
     Indication: ANXIETY
     Route: 065
     Dates: start: 201602
  13. UREA, CREAM [Concomitant]
     Indication: DRY SKIN
     Dosage: OTHER
     Route: 065
  14. L-THYROX [Concomitant]
     Active Substance: LEVOTHYROXINE SODIUM
     Indication: THYROIDECTOMY
     Route: 065
     Dates: start: 1991
  15. PENTASA XTEND [Concomitant]
     Active Substance: MESALAMINE
     Route: 065
     Dates: start: 20151217
  16. RISPERIDONE. [Concomitant]
     Active Substance: RISPERIDONE
     Route: 065
     Dates: start: 2013
  17. GRANISETRON [Concomitant]
     Active Substance: GRANISETRON
     Indication: CHEMOTHERAPY
     Route: 065
     Dates: start: 20160504
  18. PALONOSETRON [Concomitant]
     Active Substance: PALONOSETRON
     Indication: CHEMOTHERAPY
     Route: 065
     Dates: start: 20160105, end: 20160315

REACTIONS (1)
  - Anastomotic ulcer [Recovered/Resolved]

NARRATIVE: CASE EVENT DATE: 201702
